FAERS Safety Report 14635597 (Version 2)
Quarter: 2018Q1

REPORT INFORMATION
  Report Type: Spontaneous
  Country: ES (occurrence: ES)
  Receive Date: 20180314
  Receipt Date: 20180315
  Transmission Date: 20180509
  Serious: Yes (Other)
  Sender: FDA-Public Use
  Company Number: ES-PFIZER INC-2018089498

PATIENT
  Age: 55 Year
  Sex: Female

DRUGS (10)
  1. VANCOMYCIN HCL [Suspect]
     Active Substance: VANCOMYCIN HYDROCHLORIDE
     Indication: STAPHYLOCOCCAL INFECTION
     Dosage: 1 G, 2X/DAY
     Route: 042
  2. PETHIDINE [Concomitant]
     Active Substance: MEPERIDINE
     Dosage: 50 MG, 4X/DAY
  3. DEXKETOPROFEN [Concomitant]
     Active Substance: DEXKETOPROFEN
     Indication: PAIN
     Dosage: 50 MG, 3X/DAY, (PRN)
  4. LORAZEPAM. [Concomitant]
     Active Substance: LORAZEPAM
     Dosage: 1 MG, 1X/DAY
  5. OLMESARTAN [Concomitant]
     Active Substance: OLMESARTAN
     Dosage: 40 MG, 1X/DAY
  6. CIPROFLOXACIN. [Concomitant]
     Active Substance: CIPROFLOXACIN
     Indication: WOUND INFECTION
  7. PANTOPRAZOLE [Concomitant]
     Active Substance: PANTOPRAZOLE
     Dosage: 40 MG, 1X/DAY
  8. VANCOMYCIN HCL [Suspect]
     Active Substance: VANCOMYCIN HYDROCHLORIDE
     Indication: WOUND INFECTION
  9. PARACETAMOL [Concomitant]
     Active Substance: ACETAMINOPHEN
     Dosage: 1 G, 3X/DAY
  10. CIPROFLOXACIN. [Concomitant]
     Active Substance: CIPROFLOXACIN
     Indication: STAPHYLOCOCCAL INFECTION
     Dosage: 400 MG, 2X/DAY

REACTIONS (1)
  - Pancytopenia [Recovered/Resolved]
